FAERS Safety Report 4814933-5 (Version None)
Quarter: 2005Q4

REPORT INFORMATION
  Report Type: 
  Country: None (occurrence: None)
  Receive Date: 20051026
  Receipt Date: 20051017
  Transmission Date: 20060501
  Serious: Yes (Hospitalization)
  Sender: FDA-Public Use
  Company Number: 2005143278

PATIENT
  Age: 104 Year
  Sex: Male

DRUGS (6)
  1. ALDACTONE [Suspect]
     Indication: ILL-DEFINED DISORDER
     Dosage: 25 MG ORAL
     Route: 048
  2. NITROGLYCERIN [Suspect]
     Indication: ILL-DEFINED DISORDER
     Dosage: 10 MG, (10 MG), TOPICAL
     Route: 061
  3. ATROVENT [Suspect]
     Indication: ILL-DEFINED DISORDER
     Dosage: 6 DOSE FORMS (INTERVAL: EVERY DAY), INHALATION
     Route: 055
  4. XATRAL (ALFUZOSIN) [Suspect]
     Indication: ILL-DEFINED DISORDER
     Dosage: 10 MG ORAL
     Route: 048
  5. LOVENOX [Suspect]
     Indication: ILL-DEFINED DISORDER
     Dosage: 40 MG (40 MG), INTRAMUSCULAR
     Route: 030
     Dates: start: 20050101
  6. OXEOL (BAMBUTEROL HYDROCHLORIDE) [Suspect]
     Indication: ILL-DEFINED DISORDER
     Dosage: 10 MG (10 MG), ORAL
     Route: 048

REACTIONS (2)
  - INTESTINAL OBSTRUCTION [None]
  - MUSCLE HAEMORRHAGE [None]
